FAERS Safety Report 6549295-9 (Version None)
Quarter: 2010Q1

REPORT INFORMATION
  Report Type: 
  Country: None (occurrence: None)
  Receive Date: 20100125
  Receipt Date: 20100114
  Transmission Date: 20100710
  Serious: Yes (Other)
  Sender: FDA-Public Use
  Company Number: GB-JNJFOC-20100105265

PATIENT
  Age: 23 Year
  Sex: Male

DRUGS (1)
  1. REMICADE [Suspect]
     Indication: COLITIS ULCERATIVE
     Route: 042
     Dates: start: 20091101

REACTIONS (6)
  - ASPERGILLOSIS [None]
  - DRUG INEFFECTIVE [None]
  - HERPES SIMPLEX [None]
  - LUNG DISORDER [None]
  - TRACHEAL INFLAMMATION [None]
  - TRACHEAL ULCER [None]
